FAERS Safety Report 5781111-5 (Version None)
Quarter: 2008Q2

REPORT INFORMATION
  Report Type: 
  Country: None (occurrence: None)
  Receive Date: 20080620
  Receipt Date: 20080612
  Transmission Date: 20081010
  Serious: Yes (Hospitalization)
  Sender: FDA-Public Use
  Company Number: TR-PFIZER INC-2008050222

PATIENT
  Age: 52 Year
  Sex: Female

DRUGS (4)
  1. PREDNISOLONE [Suspect]
     Indication: GLOMERULONEPHRITIS MEMBRANOPROLIFERATIVE
     Dosage: DAILY DOSE:20MG
  2. AZATHIOPRINE [Suspect]
     Indication: PROTEINURIA
     Dosage: DAILY DOSE:125MG
  3. CYCLOSPORINE [Suspect]
     Indication: PROTEINURIA
  4. MYCOPHENOLATE MOFETIL [Suspect]
     Indication: PROTEINURIA

REACTIONS (1)
  - KAPOSI'S SARCOMA [None]
